FAERS Safety Report 4800481-5 (Version None)
Quarter: 2005Q3

REPORT INFORMATION
  Report Type: 
  Country: None (occurrence: None)
  Receive Date: 20050928
  Receipt Date: 20050811
  Transmission Date: 20060218
  Serious: Yes (Hospitalization)
  Sender: FDA-Public Use
  Company Number: 2005BH001104

PATIENT
  Age: 80 Year
  Sex: Female

DRUGS (11)
  1. SUPRANE [Suspect]
     Indication: GENERAL ANAESTHESIA
     Dosage: INH
     Route: 055
     Dates: start: 20050707, end: 20050707
  2. DIPRIVAN [Suspect]
     Indication: GENERAL ANAESTHESIA
     Dosage: IV
     Route: 042
     Dates: start: 20050707, end: 20050707
  3. RAPIFEN (ALFENTANIL HYDROCHLORIDE) [Suspect]
     Indication: GENERAL ANAESTHESIA
     Dosage: IV
     Route: 042
     Dates: start: 20050707, end: 20050707
  4. TIMOLOL MALEATE [Suspect]
     Dosage: IO
     Dates: start: 20050705, end: 20050706
  5. CITALOPRAM HYDROBROMIDE [Concomitant]
  6. OSTRAM [Concomitant]
  7. PERIDYS [Concomitant]
  8. NEXIUM [Concomitant]
  9. ARICEPT [Concomitant]
  10. XALATAN [Concomitant]
  11. EXOCINE [Concomitant]

REACTIONS (6)
  - CONVULSION [None]
  - ELECTROCARDIOGRAM QT PROLONGED [None]
  - HYPOKALAEMIA [None]
  - LOSS OF CONSCIOUSNESS [None]
  - MALAISE [None]
  - TORSADE DE POINTES [None]
